FAERS Safety Report 22998577 (Version 2)
Quarter: 2023Q4

REPORT INFORMATION
  Report Type: Spontaneous
  Country: JP (occurrence: JP)
  Receive Date: 20230928
  Receipt Date: 20231106
  Transmission Date: 20240109
  Serious: Yes (Hospitalization)
  Sender: FDA-Public Use
  Company Number: JP-JNJFOC-20230964635

PATIENT
  Age: 33 Year
  Sex: Male

DRUGS (16)
  1. INVEGA [Suspect]
     Active Substance: PALIPERIDONE
     Indication: Schizophrenia
     Route: 048
     Dates: start: 20220827, end: 2022
  2. INVEGA [Suspect]
     Active Substance: PALIPERIDONE
     Dosage: DOSE UNKNOWNGRADUALLY DECREASED
     Route: 048
     Dates: start: 202211, end: 20230616
  3. INVEGA [Suspect]
     Active Substance: PALIPERIDONE
     Route: 048
     Dates: start: 20230617
  4. VALPROATE SODIUM [Concomitant]
     Active Substance: VALPROATE SODIUM
     Route: 048
     Dates: start: 20220827
  5. HALOPERIDOL [Concomitant]
     Active Substance: HALOPERIDOL
     Route: 065
     Dates: start: 20220827, end: 2022
  6. HALOPERIDOL [Concomitant]
     Active Substance: HALOPERIDOL
     Dosage: DOSE UNKNOWNGRADUALLY DECREASED
     Route: 065
     Dates: start: 202210, end: 202211
  7. HALOPERIDOL [Concomitant]
     Active Substance: HALOPERIDOL
     Route: 065
     Dates: start: 20230617, end: 20230919
  8. HALOPERIDOL [Concomitant]
     Active Substance: HALOPERIDOL
     Dosage: DOSE UNKNOWNGRADUALLY DECREASED
     Route: 065
     Dates: start: 20230920
  9. FLUNITRAZEPAM [Concomitant]
     Active Substance: FLUNITRAZEPAM
     Route: 065
     Dates: start: 20220827
  10. LEVOMEPROMAZINE [Concomitant]
     Active Substance: LEVOMEPROMAZINE
     Route: 065
     Dates: start: 20220827, end: 2022
  11. LEVOMEPROMAZINE [Concomitant]
     Active Substance: LEVOMEPROMAZINE
     Dosage: DOSE UNKNOWNGRADUALLY DECREASED
     Route: 065
     Dates: start: 202210, end: 20230616
  12. LEVOMEPROMAZINE [Concomitant]
     Active Substance: LEVOMEPROMAZINE
     Route: 065
     Dates: start: 20230617
  13. BROTIZOLAM [Concomitant]
     Active Substance: BROTIZOLAM
     Route: 048
     Dates: start: 20230617
  14. CLOTIAZEPAM [Concomitant]
     Active Substance: CLOTIAZEPAM
     Route: 048
     Dates: start: 20230617
  15. VALBENAZINE TOSYLATE [Concomitant]
     Active Substance: VALBENAZINE TOSYLATE
     Route: 048
     Dates: start: 20230826, end: 20230905
  16. VALBENAZINE TOSYLATE [Concomitant]
     Active Substance: VALBENAZINE TOSYLATE
     Dosage: DOSE UNKNOWN
     Route: 048
     Dates: start: 20230913, end: 20230920

REACTIONS (4)
  - Tardive dyskinesia [Not Recovered/Not Resolved]
  - Schizophrenia [Recovered/Resolved]
  - Nausea [Unknown]
  - SARS-CoV-2 test positive [Unknown]

NARRATIVE: CASE EVENT DATE: 20221001
